FAERS Safety Report 19810639 (Version 1)
Quarter: 2021Q3

REPORT INFORMATION
  Report Type: Spontaneous
  Country: IN (occurrence: IN)
  Receive Date: 20210909
  Receipt Date: 20210909
  Transmission Date: 20211014
  Serious: Yes (Death, Other)
  Sender: FDA-Public Use
  Company Number: IN-PFIZER INC-2021360721

PATIENT
  Age: 49 Year
  Sex: Female

DRUGS (7)
  1. TYDOL [PARACETAMOL] [Concomitant]
     Dosage: 100 MG
  2. CCM [Concomitant]
     Dosage: UNK, DAILY
  3. DACOPLICE [Suspect]
     Active Substance: DACOMITINIB
     Dosage: 45 MG, 1X/DAY
     Route: 048
     Dates: start: 20201222
  4. CALADRYL LOTION (CAN) [Concomitant]
     Dosage: UNK, 2X/DAY
  5. TYDOL [PARACETAMOL] [Concomitant]
     Dosage: 100 MG, 2X/DAY
  6. DACOPLICE [Suspect]
     Active Substance: DACOMITINIB
     Dosage: 45 MG, 1X/DAY
     Route: 048
     Dates: start: 20210331
  7. GABAPIN NT [Concomitant]
     Dosage: UNK, 1X/DAY (HS)

REACTIONS (1)
  - Death [Fatal]
